FAERS Safety Report 13121047 (Version 1)
Quarter: 2017Q1

REPORT INFORMATION
  Report Type: Spontaneous
  Country: US (occurrence: US)
  Receive Date: 20170113
  Receipt Date: 20170113
  Transmission Date: 20170428
  Serious: No
  Sender: FDA-Public Use
  Company Number: None

PATIENT
  Age: 53 Year
  Sex: Female

DRUGS (1)
  1. AMPYRA [Suspect]
     Active Substance: DALFAMPRIDINE
     Indication: MULTIPLE SCLEROSIS
     Route: 048
     Dates: start: 20150323, end: 20161223

REACTIONS (7)
  - Urinary tract infection [None]
  - Culture urine positive [None]
  - Escherichia urinary tract infection [None]
  - Glycosylated haemoglobin increased [None]
  - Alanine aminotransferase increased [None]
  - Diabetes mellitus [None]
  - Blood glucose increased [None]

NARRATIVE: CASE EVENT DATE: 20170105
